FAERS Safety Report 15751942 (Version 2)
Quarter: 2019Q1

REPORT INFORMATION
  Report Type: Report from Study
  Country: US (occurrence: US)
  Receive Date: 20181221
  Receipt Date: 20190208
  Transmission Date: 20190417
  Serious: Yes (Death, Hospitalization)
  Sender: FDA-Public Use
  Company Number: US-TAIHO ONCOLOGY  INC-EU-2018-02436

PATIENT
  Age: 51 Year
  Sex: Female

DRUGS (1)
  1. LONSURF [Suspect]
     Active Substance: TIPIRACIL HYDROCHLORIDE\TRIFLURIDINE
     Indication: COLON CANCER
     Dosage: UNKNOWN CYCLE AT TIME OF DEATH
     Route: 048
     Dates: start: 20180924, end: 2018

REACTIONS (4)
  - Rectal haemorrhage [Unknown]
  - Thrombocytopenia [Unknown]
  - Disease progression [Fatal]
  - Anaemia [Unknown]

NARRATIVE: CASE EVENT DATE: 20180316
